FAERS Safety Report 16125136 (Version 1)
Quarter: 2019Q1

REPORT INFORMATION
  Report Type: Report from Study
  Country: ES (occurrence: ES)
  Receive Date: 20190327
  Receipt Date: 20190327
  Transmission Date: 20190418
  Serious: Yes (Hospitalization)
  Sender: FDA-Public Use
  Company Number: ES-PFIZER INC-2019119127

PATIENT
  Age: 43 Year
  Sex: Male
  Weight: 61.5 kg

DRUGS (2)
  1. SUNITINIB MALATE. [Suspect]
     Active Substance: SUNITINIB MALATE
     Indication: NEOPLASM MALIGNANT
     Dosage: 37.5 MG, DAILY
     Dates: start: 20180523
  2. BMS-936558 [Suspect]
     Active Substance: NIVOLUMAB
     Indication: NEOPLASM MALIGNANT
     Dosage: UNK
     Dates: start: 20180607

REACTIONS (1)
  - Discomfort [Unknown]

NARRATIVE: CASE EVENT DATE: 20190312
